FAERS Safety Report 9757687 (Version 3)
Quarter: 2014Q1

REPORT INFORMATION
  Report Type: Report from Study
  Country: US (occurrence: US)
  Receive Date: 20131216
  Receipt Date: 20140225
  Transmission Date: 20141002
  Serious: Yes (Other)
  Sender: FDA-Public Use
  Company Number: US-BIOGENIDEC-2013BI117317

PATIENT
  Age: 48 Year
  Sex: Female
  Weight: 106 kg

DRUGS (23)
  1. TYSABRI [Suspect]
     Indication: MULTIPLE SCLEROSIS
     Route: 042
     Dates: start: 20090611, end: 20091130
  2. FINGOLIMOD [Concomitant]
     Indication: MULTIPLE SCLEROSIS
     Route: 048
     Dates: start: 20130329
  3. LYRICA [Concomitant]
     Route: 048
     Dates: start: 20131014
  4. LYRICA [Concomitant]
     Route: 048
     Dates: start: 20130910
  5. AMPHETAMINE-DEXTROAMPHETAMINE [Concomitant]
     Indication: ASTHENIA
     Route: 048
     Dates: start: 20130918
  6. MAGNESIUM-OXIDE [Concomitant]
     Route: 048
     Dates: start: 20130906
  7. CYCLOBENZAPRINE [Concomitant]
     Route: 048
     Dates: start: 20130813
  8. RABEPRAZOLE [Concomitant]
     Indication: GASTROOESOPHAGEAL REFLUX DISEASE
     Route: 048
     Dates: start: 20130430
  9. AMANTADINE [Concomitant]
     Indication: MULTIPLE SCLEROSIS
     Route: 048
     Dates: start: 20130407
  10. TIZANIDINE [Concomitant]
     Indication: MULTIPLE SCLEROSIS
     Route: 048
     Dates: start: 20130310
  11. DIPHENHYDRAMINE [Concomitant]
     Indication: PRURITUS
     Route: 048
     Dates: start: 20110719
  12. LOVAZA [Concomitant]
     Route: 048
  13. CALCIUM [Concomitant]
     Route: 048
  14. ROSUVASTATIN [Concomitant]
     Indication: HYPERCHOLESTEROLAEMIA
     Route: 048
  15. CHOLECALCIFEROL [Concomitant]
     Route: 048
  16. ALPRAZOLAM [Concomitant]
     Indication: DEPRESSION
     Route: 048
  17. ALPRAZOLAM [Concomitant]
     Indication: ANXIETY
     Route: 048
  18. TRAZODONE [Concomitant]
     Indication: DEPRESSION
     Route: 048
  19. TRAZODONE [Concomitant]
     Indication: ANXIETY
     Route: 048
  20. DULOXETINE [Concomitant]
     Indication: DEPRESSION
     Route: 048
  21. DULOXETINE [Concomitant]
     Indication: ANXIETY
     Route: 048
  22. BISOPROLOL [Concomitant]
     Indication: HYPERTENSION
     Route: 048
  23. HYDROCHLOROTHIAZIDE [Concomitant]
     Indication: HYPERTENSION
     Route: 048

REACTIONS (1)
  - Squamous cell carcinoma [Recovered/Resolved]
